FAERS Safety Report 8476225 (Version 6)
Quarter: 2012Q4

REPORT INFORMATION
  Report Type: 
  Country: IT (occurrence: IT)
  Receive Date: 20120326
  Receipt Date: 20120830
  Transmission Date: 20130627
  Serious: Yes (Hospitalization, Other)
  Sender: FDA-Public Use
  Company Number: IT-ELI_LILLY_AND_COMPANY-IT201203003942

PATIENT
  Age: 72 Year
  Sex: Male

DRUGS (7)
  1. ALIMTA [Suspect]
     Indication: LUNG ADENOCARCINOMA
     Dosage: 500 mg/m2, qd
     Route: 042
     Dates: start: 20120105, end: 20120328
  2. ALIMTA [Suspect]
     Dosage: 603 mg/m2, unknown
     Route: 042
     Dates: start: 20120423, end: 20120704
  3. CISPLATIN [Concomitant]
     Dosage: 75 mg/m2, unknown
     Route: 042
     Dates: start: 20120105, end: 20120105
  4. CARBOPLATIN [Concomitant]
     Dosage: 396 mg, unknown
     Route: 042
     Dates: start: 20120328, end: 20120704
  5. DEXAMETHASONE [Concomitant]
     Indication: LUNG ADENOCARCINOMA
     Dosage: 20 mg, unknown
     Route: 042
     Dates: start: 20120105, end: 20120105
  6. ZOFRAN [Concomitant]
     Dosage: 8 mg, unknown
     Route: 042
     Dates: start: 20120105, end: 20120105
  7. HEPARIN [Concomitant]

REACTIONS (11)
  - Chronic obstructive pulmonary disease [Unknown]
  - Chronic obstructive pulmonary disease [Recovering/Resolving]
  - Bronchopneumonia [Recovered/Resolved]
  - Deep vein thrombosis [Unknown]
  - Pancytopenia [Recovering/Resolving]
  - General physical health deterioration [Recovering/Resolving]
  - Chronic obstructive pulmonary disease [Recovered/Resolved]
  - Gastroenteritis viral [Unknown]
  - Weight decreased [Unknown]
  - Diarrhoea [Unknown]
  - Epididymitis [Recovering/Resolving]
